FAERS Safety Report 6526056-8 (Version None)
Quarter: 2010Q1

REPORT INFORMATION
  Report Type: 
  Country: None (occurrence: None)
  Receive Date: 20100104
  Receipt Date: 20091221
  Transmission Date: 20100710
  Serious: Yes (Hospitalization)
  Sender: FDA-Public Use
  Company Number: CN-MYLANLABS-2009S1021701

PATIENT
  Age: 74 Year
  Sex: Male

DRUGS (4)
  1. CLONAZEPAM [Suspect]
     Indication: POOR QUALITY SLEEP
     Dosage: TAKEN AT NIGHT
  2. NITRENDIPINE [Concomitant]
     Indication: BLOOD PRESSURE INCREASED
  3. BENAZEPRIL HYDROCHLORIDE [Concomitant]
     Indication: BLOOD PRESSURE INCREASED
  4. TAMSULOSIN HCL [Concomitant]
     Dosage: TAKEN AT NIGHT

REACTIONS (1)
  - ELECTROCARDIOGRAM RR INTERVAL PROLONGED [None]
